FAERS Safety Report 5052538-4 (Version None)
Quarter: 2006Q3

REPORT INFORMATION
  Report Type: 
  Country: None (occurrence: None)
  Receive Date: 20060717
  Receipt Date: 20060602
  Transmission Date: 20061208
  Serious: Yes (Hospitalization)
  Sender: FDA-Public Use
  Company Number: PHEH2006US07270

PATIENT
  Age: 75 Year
  Sex: Female

DRUGS (7)
  1. ASPIRIN [Concomitant]
     Dosage: 81 MG, QD
  2. MIRAPEX [Concomitant]
     Dosage: 125 MG, TID
  3. LIPITOR [Concomitant]
     Dosage: 10 MG, QD
  4. ARTHROTEC [Concomitant]
     Dosage: 75 MG, BID
  5. TYLENOL (CAPLET) [Concomitant]
     Dosage: UNK, PRN
  6. TYLENOL SINUS [Concomitant]
     Dosage: UNK, PRN
  7. EXJADE [Suspect]
     Indication: MYELODYSPLASTIC SYNDROME
     Dosage: UNK MG, QD
     Route: 048
     Dates: start: 20060226, end: 20060304

REACTIONS (7)
  - ANAPHYLACTIC REACTION [None]
  - EOSINOPHIL PERCENTAGE INCREASED [None]
  - ERYTHEMA [None]
  - LEUKOPENIA [None]
  - LYMPHOCYTE PERCENTAGE INCREASED [None]
  - NEUTROPHIL PERCENTAGE DECREASED [None]
  - PRURITUS [None]
